FAERS Safety Report 9897108 (Version 2)
Quarter: 2014Q2

REPORT INFORMATION
  Report Type: Spontaneous
  Country: US (occurrence: US)
  Receive Date: 20140214
  Receipt Date: 20140501
  Transmission Date: 20141212
  Serious: No
  Sender: FDA-Public Use
  Company Number: US-009507513-1402USA004592

PATIENT
  Age: 65 Year
  Sex: Female

DRUGS (3)
  1. PROVENTIL [Suspect]
     Indication: ASTHMA
     Dosage: 90 MICROGRAM, PRN
     Route: 055
     Dates: start: 201202
  2. PROVENTIL [Suspect]
     Indication: BRONCHITIS CHRONIC
  3. PREVACID [Concomitant]

REACTIONS (5)
  - Oral pain [Recovered/Resolved]
  - Oropharyngeal pain [Recovering/Resolving]
  - Drug ineffective for unapproved indication [Recovered/Resolved]
  - Dysphonia [Recovered/Resolved]
  - Product taste abnormal [Unknown]
